FAERS Safety Report 4552857-1 (Version None)
Quarter: 2005Q1

REPORT INFORMATION
  Report Type: 
  Country: None (occurrence: None)
  Receive Date: 20050111
  Receipt Date: 20050111
  Transmission Date: 20050727
  Serious: Yes (Other)
  Sender: FDA-Public Use
  Company Number: None

PATIENT
  Sex: Female
  Weight: 112.0385 kg

DRUGS (2)
  1. QUINAPRIL [Suspect]
     Indication: HYPERTENSION
     Dosage: 20MG PO QD
     Route: 048
     Dates: start: 20041101
  2. ACCUPRIL [Concomitant]

REACTIONS (2)
  - DIZZINESS [None]
  - PHARMACEUTICAL PRODUCT COMPLAINT [None]
